FAERS Safety Report 12711942 (Version 1)
Quarter: 2016Q3

REPORT INFORMATION
  Report Type: Spontaneous
  Country: US (occurrence: US)
  Receive Date: 20160902
  Receipt Date: 20160902
  Transmission Date: 20161109
  Serious: No
  Sender: FDA-Public Use
  Company Number: US-BAYER-2016-163932

PATIENT
  Age: 7 Year
  Sex: Male
  Weight: 29.47 kg

DRUGS (1)
  1. MIRALAX [Suspect]
     Active Substance: POLYETHYLENE GLYCOL 3350
     Indication: CONSTIPATION
     Dosage: (1/2 OF A CAPFUL)
     Dates: start: 201605, end: 20160821

REACTIONS (3)
  - Micturition disorder [Recovered/Resolved]
  - Product use issue [None]
  - Micturition disorder [Recovered/Resolved]

NARRATIVE: CASE EVENT DATE: 2016
